FAERS Safety Report 10403535 (Version 1)
Quarter: 2014Q3

REPORT INFORMATION
  Report Type: Spontaneous
  Country: AU (occurrence: AU)
  Receive Date: 20140822
  Receipt Date: 20140822
  Transmission Date: 20150326
  Serious: Yes (Other)
  Sender: FDA-Public Use
  Company Number: AU-ALLERGAN-1418059US

PATIENT
  Age: 31 Year
  Sex: Male
  Weight: 70 kg

DRUGS (1)
  1. OPHTHETIC [Suspect]
     Active Substance: PROPARACAINE HYDROCHLORIDE
     Indication: GLAUCOMA
     Dosage: 4  DOSE UNSPEC TOTAL
     Route: 047
     Dates: start: 19870817

REACTIONS (2)
  - Generalised tonic-clonic seizure [Recovered/Resolved]
  - Syncope [Recovered/Resolved]

NARRATIVE: CASE EVENT DATE: 19870817
